FAERS Safety Report 6315053-3 (Version None)
Quarter: 2009Q3

REPORT INFORMATION
  Report Type: 
  Country: None (occurrence: None)
  Receive Date: 20090818
  Receipt Date: 20090818
  Transmission Date: 20100115
  Serious: No
  Sender: FDA-Public Use
  Company Number: None

PATIENT
  Age: 52 Year
  Sex: Female
  Weight: 83.9154 kg

DRUGS (1)
  1. SCOPOLAMINE [Suspect]
     Indication: MOTION SICKNESS
     Dosage: 1 PATCH 72 HOURS TRANSDERMAL
     Route: 062
     Dates: start: 20080701, end: 20080714

REACTIONS (3)
  - IMPAIRED WORK ABILITY [None]
  - NAUSEA [None]
  - STRESS [None]
